FAERS Safety Report 21964655 (Version 3)
Quarter: 2023Q2

REPORT INFORMATION
  Report Type: Report from Study
  Country: US (occurrence: US)
  Receive Date: 20230207
  Receipt Date: 20230404
  Transmission Date: 20230721
  Serious: Yes (Other)
  Sender: FDA-Public Use
  Company Number: US-ALLERGAN-2303253US

PATIENT
  Sex: Female

DRUGS (2)
  1. BOTULINUM TOXIN TYPE A [Suspect]
     Active Substance: BOTULINUM TOXIN TYPE A
     Indication: Migraine
     Dosage: UNK, SINGLE
     Dates: start: 2000, end: 2000
  2. BOTULINUM TOXIN TYPE A [Suspect]
     Active Substance: BOTULINUM TOXIN TYPE A
     Dosage: UNK, SINGLE
     Dates: start: 2014, end: 2014

REACTIONS (16)
  - Blindness unilateral [Unknown]
  - Blindness transient [Recovered/Resolved]
  - Electric shock sensation [Unknown]
  - Tinnitus [Unknown]
  - Vision blurred [Unknown]
  - Fall [Recovered/Resolved]
  - Photopsia [Unknown]
  - Ophthalmic migraine [Unknown]
  - Blood cholesterol [Unknown]
  - Diabetes mellitus [Unknown]
  - Head injury [Unknown]
  - Nausea [Unknown]
  - Therapeutic response shortened [Unknown]
  - Headache [Recovered/Resolved]
  - Diarrhoea [Recovered/Resolved]
  - Concussion [Unknown]

NARRATIVE: CASE EVENT DATE: 20000101
